FAERS Safety Report 10158686 (Version 4)
Quarter: 2015Q1

REPORT INFORMATION
  Report Type: Report from Study
  Country: US (occurrence: US)
  Receive Date: 20140508
  Receipt Date: 20150219
  Transmission Date: 20150720
  Serious: Yes (Hospitalization)
  Sender: FDA-Public Use
  Company Number: US-BIOGENIDEC-2014BI042944

PATIENT
  Age: 43 Year
  Sex: Female

DRUGS (21)
  1. TYSABRI [Suspect]
     Active Substance: NATALIZUMAB
     Indication: MULTIPLE SCLEROSIS
     Route: 042
     Dates: start: 20110401, end: 20121120
  2. IBUPROFEN. [Concomitant]
     Active Substance: IBUPROFEN
  3. PRE-NATAL FORMULA [Concomitant]
  4. XOPENEX [Concomitant]
     Active Substance: LEVALBUTEROL HYDROCHLORIDE
  5. HYDROCORTISONE. [Concomitant]
     Active Substance: HYDROCORTISONE
  6. TOPAMAX [Concomitant]
     Active Substance: TOPIRAMATE
  7. AMBIEN CR [Concomitant]
     Active Substance: ZOLPIDEM TARTRATE
  8. OXCARBAZEPINE. [Concomitant]
     Active Substance: OXCARBAZEPINE
  9. PROAIR HFA [Concomitant]
     Active Substance: ALBUTEROL SULFATE
  10. ZANTAC [Concomitant]
     Active Substance: RANITIDINE HYDROCHLORIDE
  11. SYNTHROID [Concomitant]
     Active Substance: LEVOTHYROXINE SODIUM
  12. VITAMIN D [Concomitant]
     Active Substance: CHOLECALCIFEROL
  13. FIORICET [Concomitant]
     Active Substance: ACETAMINOPHEN\BUTALBITAL\CAFFEINE
  14. FOLIC ACID. [Concomitant]
     Active Substance: FOLIC ACID
  15. LYRICA [Concomitant]
     Active Substance: PREGABALIN
  16. MIRENA [Concomitant]
     Active Substance: LEVONORGESTREL
  17. DILAUDID [Concomitant]
     Active Substance: HYDROMORPHONE HYDROCHLORIDE
  18. ZANAFLEX [Concomitant]
     Active Substance: TIZANIDINE HYDROCHLORIDE
  19. PREVACID [Concomitant]
     Active Substance: LANSOPRAZOLE
  20. VALIUM [Concomitant]
     Active Substance: DIAZEPAM
  21. VITAMIN B12 [Concomitant]
     Active Substance: CYANOCOBALAMIN

REACTIONS (1)
  - Breast cancer [Not Recovered/Not Resolved]

NARRATIVE: CASE EVENT DATE: 20131128
